FAERS Safety Report 9936656 (Version 1)
Quarter: 2014Q1

REPORT INFORMATION
  Report Type: Spontaneous
  Country: US (occurrence: US)
  Receive Date: 20140228
  Receipt Date: 20140228
  Transmission Date: 20141002
  Serious: No
  Sender: FDA-Public Use
  Company Number: US-SANOFI-AVENTIS-2013SA023190

PATIENT
  Age: 56 Year
  Sex: Male

DRUGS (2)
  1. DIABETA [Suspect]
     Indication: TYPE 2 DIABETES MELLITUS
     Route: 048
  2. METFORMIN [Concomitant]

REACTIONS (3)
  - Swelling face [Unknown]
  - Lip swelling [Unknown]
  - Liver disorder [Unknown]
